FAERS Safety Report 6043089-9 (Version None)
Quarter: 2009Q1

REPORT INFORMATION
  Report Type: 
  Country: None (occurrence: None)
  Receive Date: 20090119
  Receipt Date: 20081218
  Transmission Date: 20090719
  Serious: Yes (Other)
  Sender: FDA-Public Use
  Company Number: US-ROCHE-603530

PATIENT
  Sex: Male
  Weight: 44.5 kg

DRUGS (2)
  1. PEG-INTERFERON ALFA 2A (RO 25-8310) [Suspect]
     Dosage: LAST DOSE BEFORE SAE 6 FEB 2007
     Route: 058
     Dates: start: 20060313
  2. RIBAVIRIN [Suspect]
     Dosage: DAILY DOSE BLINDED,LAST DOSE PRIOR TO SAE 12 FEB 2007
     Route: 048
     Dates: start: 20060313

REACTIONS (1)
  - IRIDOCYCLITIS [None]
